FAERS Safety Report 6115235-X (Version None)
Quarter: 2009Q1

REPORT INFORMATION
  Report Type: 
  Country: None (occurrence: None)
  Receive Date: 20090313
  Receipt Date: 20090305
  Transmission Date: 20090719
  Serious: Yes (Hospitalization, Other)
  Sender: FDA-Public Use
  Company Number: US-MERCK-0709USA00198

PATIENT
  Age: 69 Year
  Sex: Female
  Weight: 83 kg

DRUGS (6)
  1. FOSAMAX [Suspect]
     Indication: OSTEOPOROSIS
     Route: 048
     Dates: start: 19960105, end: 19970301
  2. FOSAMAX [Suspect]
     Route: 048
     Dates: start: 19970926
  3. FOSAMAX [Suspect]
     Route: 048
     Dates: start: 20020601, end: 20030101
  4. FOSAMAX [Suspect]
     Route: 048
     Dates: start: 20030201, end: 20060101
  5. VITAMIN D (UNSPECIFIED) [Concomitant]
     Indication: OSTEOPOROSIS
     Route: 048
     Dates: start: 19960101
  6. CALCIUM (UNSPECIFIED) [Concomitant]
     Indication: OSTEOPOROSIS
     Route: 048
     Dates: start: 19960101

REACTIONS (33)
  - ABDOMINAL PAIN [None]
  - ADVERSE DRUG REACTION [None]
  - ANAEMIA [None]
  - APPENDIX DISORDER [None]
  - ARTHRALGIA [None]
  - BRONCHITIS [None]
  - CARPAL TUNNEL SYNDROME [None]
  - CATARACT [None]
  - CEREBROVASCULAR ACCIDENT [None]
  - CHEST PAIN [None]
  - DYSURIA [None]
  - FALL [None]
  - GAIT DISTURBANCE [None]
  - HYPERCHOLESTEROLAEMIA [None]
  - INTERCOSTAL NEURALGIA [None]
  - LIPIDS INCREASED [None]
  - MALIGNANT MELANOMA [None]
  - MONARTHRITIS [None]
  - MUSCULOSKELETAL CHEST PAIN [None]
  - MYOCARDIAL INFARCTION [None]
  - NAUSEA [None]
  - NOCTURIA [None]
  - OSTEOARTHRITIS [None]
  - OSTEONECROSIS [None]
  - PERIODONTAL DISEASE [None]
  - POLYP [None]
  - RESPIRATORY DISORDER [None]
  - RHINITIS ALLERGIC [None]
  - SOMNOLENCE [None]
  - SQUAMOUS CELL CARCINOMA OF SKIN [None]
  - TENOSYNOVITIS STENOSANS [None]
  - UPPER RESPIRATORY TRACT INFECTION [None]
  - WRIST FRACTURE [None]
